FAERS Safety Report 21498559 (Version 9)
Quarter: 2022Q4

REPORT INFORMATION
  Report Type: Report from Study
  Country: BR (occurrence: BR)
  Receive Date: 20221024
  Receipt Date: 20221222
  Transmission Date: 20230113
  Serious: Yes (Death, Life-Threatening, Hospitalization)
  Sender: FDA-Public Use
  Company Number: BR-GLAXOSMITHKLINE-BR2022150703

PATIENT

DRUGS (3)
  1. BELANTAMAB MAFODOTIN [Suspect]
     Active Substance: BELANTAMAB MAFODOTIN
     Indication: Plasma cell myeloma
     Dosage: 2.5 MG/KG, Q6W (182.5 MG)
     Route: 042
     Dates: start: 20220916, end: 20220916
  2. LIDOCAINE [Concomitant]
     Active Substance: LIDOCAINE
     Indication: Haemoptysis
     Dosage: 20 ML (FREQUENCY = UNKNOWN)
     Route: 030
     Dates: start: 20221029, end: 20221101
  3. EPINEPHRINE [Concomitant]
     Active Substance: EPINEPHRINE
     Indication: Haemoptysis
     Dosage: 1 MG/ML (FREQUENCY = UNKNOWN)
     Route: 042
     Dates: start: 20221029, end: 20221029

REACTIONS (5)
  - Pulmonary sepsis [Recovering/Resolving]
  - Febrile neutropenia [Recovered/Resolved]
  - Haemoptysis [Recovering/Resolving]
  - Acute kidney injury [Recovering/Resolving]
  - Post procedural haemorrhage [Fatal]

NARRATIVE: CASE EVENT DATE: 20221018
